FAERS Safety Report 23066542 (Version 1)
Quarter: 2023Q4

REPORT INFORMATION
  Report Type: Spontaneous
  Country: US (occurrence: US)
  Receive Date: 20231015
  Receipt Date: 20231015
  Transmission Date: 20240110
  Serious: No
  Sender: FDA-Public Use
  Company Number: US-ABBVIE-5449662

PATIENT
  Sex: Female

DRUGS (1)
  1. LASTACAFT [Suspect]
     Active Substance: ALCAFTADINE
     Indication: Eye pruritus
     Dosage: 1 DROP EACH EYE?FORM STRENGTH: 0.25 PERCENT
     Route: 047
     Dates: start: 20231012, end: 20231012

REACTIONS (4)
  - Burning sensation [Recovered/Resolved]
  - Lacrimation increased [Unknown]
  - Vision blurred [Unknown]
  - Eye irritation [Recovered/Resolved]

NARRATIVE: CASE EVENT DATE: 20231012
